FAERS Safety Report 7898111-1 (Version None)
Quarter: 2011Q4

REPORT INFORMATION
  Report Type: 
  Country: None (occurrence: None)
  Receive Date: 20111103
  Receipt Date: 20111024
  Transmission Date: 20120403
  Serious: Yes (Hospitalization, Other)
  Sender: FDA-Public Use
  Company Number: CIP11002857

PATIENT
  Age: 79 Year
  Sex: Female
  Weight: 53 kg

DRUGS (3)
  1. AMIODARONE HYDROCHLORIDE [Concomitant]
  2. ARADOIS (LOSARTAN POTASSIUM) [Concomitant]
  3. ACTONEL [Suspect]
     Indication: OSTEOPENIA
     Dosage: 150 MG, ORAL
     Route: 048
     Dates: start: 20110620, end: 20110901

REACTIONS (7)
  - THROMBOSIS [None]
  - ABDOMINAL PAIN UPPER [None]
  - ULCER [None]
  - CEREBROVASCULAR ACCIDENT [None]
  - DIARRHOEA [None]
  - ABASIA [None]
  - SLUGGISHNESS [None]
